FAERS Safety Report 5119176-6 (Version None)
Quarter: 2006Q3

REPORT INFORMATION
  Report Type: 
  Country: None (occurrence: None)
  Receive Date: 20060929
  Receipt Date: 20060929
  Transmission Date: 20061208
  Serious: Yes (Life-Threatening, Hospitalization, Disabling, Other)
  Sender: FDA-Public Use
  Company Number: None

PATIENT
  Sex: Female
  Weight: 79.3795 kg

DRUGS (2)
  1. PRO AIR     200 METERED INHALATIONS    IVAX PHARMACEUTICALS [Suspect]
     Indication: ASTHMA
     Dosage: 1 TO 2 PUFFS AS NEEDED INHAL
     Route: 055
     Dates: start: 20060701, end: 20060929
  2. ALBUTEROL SULFATE HFA INHALER      200 METERED      IVAX PHARMACEUTICA [Suspect]
     Indication: ASTHMA
     Dosage: 1 TO 2 PUFFS  AS NEEDED  INHAL
     Route: 055
     Dates: start: 20060701, end: 20060929

REACTIONS (2)
  - INCORRECT DOSE ADMINISTERED [None]
  - PHARMACEUTICAL PRODUCT COMPLAINT [None]
